FAERS Safety Report 11081189 (Version 2)
Quarter: 2015Q2

REPORT INFORMATION
  Report Type: Spontaneous
  Country: DE (occurrence: DE)
  Receive Date: 20150501
  Receipt Date: 20150511
  Transmission Date: 20150821
  Serious: No
  Sender: FDA-Public Use
  Company Number: DE-WATSON-2015-08360

PATIENT
  Age: 91 Year
  Sex: Male

DRUGS (2)
  1. TRELSTAR [Suspect]
     Active Substance: TRIPTORELIN PAMOATE
     Indication: PROSTATE CANCER
     Dosage: 11.25 MG, 1 IN 3 MO
     Route: 030
     Dates: start: 20150330
  2. TRELSTAR [Suspect]
     Active Substance: TRIPTORELIN PAMOATE
     Dosage: 11.25MG, 1 IN 3MO
     Route: 030
     Dates: start: 20150330

REACTIONS (2)
  - Underdose [Unknown]
  - Device issue [Unknown]
